FAERS Safety Report 18857046 (Version 1)
Quarter: 2021Q1

REPORT INFORMATION
  Report Type: Spontaneous
  Country: CA (occurrence: CA)
  Receive Date: 20210208
  Receipt Date: 20210208
  Transmission Date: 20210420
  Serious: Yes (Hospitalization)
  Sender: FDA-Public Use
  Company Number: CA-TEVA-2021-CA-1876447

PATIENT
  Age: 59 Year
  Sex: Male
  Weight: 83 kg

DRUGS (15)
  1. ACETAMINOPHEN. [Concomitant]
     Active Substance: ACETAMINOPHEN
  2. FRAGMIN [Concomitant]
     Active Substance: DALTEPARIN SODIUM
  3. ONDANSETRON [Concomitant]
     Active Substance: ONDANSETRON
  4. PROCHLORPERAZINE. [Concomitant]
     Active Substance: PROCHLORPERAZINE
  5. METOCLOPRAMIDE. [Concomitant]
     Active Substance: METOCLOPRAMIDE
  6. DIPHENHYDRAMINE. [Concomitant]
     Active Substance: DIPHENHYDRAMINE
  7. LORAZEPAM. [Concomitant]
     Active Substance: LORAZEPAM
  8. CYTARABINE INJECTION [Suspect]
     Active Substance: CYTARABINE
     Indication: NON-HODGKIN^S LYMPHOMA
  9. FILGRASTIM [Concomitant]
     Active Substance: FILGRASTIM
  10. FUROSEMIDE. [Concomitant]
     Active Substance: FUROSEMIDE
  11. TRIMETHOPRIMSULFAMETHOXAZOLE [Concomitant]
     Active Substance: SULFAMETHOXAZOLE\TRIMETHOPRIM
  12. METHOTREXATE. [Suspect]
     Active Substance: METHOTREXATE
     Indication: NON-HODGKIN^S LYMPHOMA
  13. DEXAMETHASONE. [Concomitant]
     Active Substance: DEXAMETHASONE
  14. FOLIC ACID. [Concomitant]
     Active Substance: FOLIC ACID
  15. RITUXAN [Suspect]
     Active Substance: RITUXIMAB
     Indication: NON-HODGKIN^S LYMPHOMA

REACTIONS (1)
  - Febrile neutropenia [Recovered/Resolved]
